FAERS Safety Report 6293158-3 (Version None)
Quarter: 2009Q3

REPORT INFORMATION
  Report Type: 
  Country: None (occurrence: None)
  Receive Date: 20090731
  Receipt Date: 20090723
  Transmission Date: 20100115
  Serious: Yes (Hospitalization, Other)
  Sender: FDA-Public Use
  Company Number: FI-SANOFI-SYNTHELABO-F01200900716

PATIENT
  Sex: Female

DRUGS (5)
  1. INDIVINA [Concomitant]
  2. MAXALT [Concomitant]
  3. BURANA [Concomitant]
  4. CAPECITABINE [Suspect]
     Route: 048
  5. OXALIPLATIN [Suspect]
     Indication: RECTAL CANCER
     Route: 042

REACTIONS (5)
  - FIBROSIS [None]
  - HEPATIC FAILURE [None]
  - HYDRONEPHROSIS [None]
  - NEUROPATHY PERIPHERAL [None]
  - THROMBOCYTOPENIA [None]
